FAERS Safety Report 9932490 (Version 2)
Quarter: 2014Q1

REPORT INFORMATION
  Report Type: Report from Study
  Country: US (occurrence: US)
  Receive Date: 20140228
  Receipt Date: 20140228
  Transmission Date: 20141002
  Serious: No
  Sender: FDA-Public Use
  Company Number: US-ABBVIE-14P-163-1186359-00

PATIENT
  Age: 57 Year
  Sex: Male
  Weight: 61.29 kg

DRUGS (4)
  1. ANDROGEL [Suspect]
     Indication: BLOOD TESTOSTERONE DECREASED
  2. TYSABRI [Concomitant]
     Indication: MULTIPLE SCLEROSIS
  3. CLONAZEPAM [Concomitant]
     Indication: MUSCLE SPASTICITY
  4. MULTIVITAMINS [Concomitant]
     Indication: VITAMIN SUPPLEMENTATION

REACTIONS (1)
  - Haematuria [Recovered/Resolved]
